FAERS Safety Report 17200999 (Version 1)
Quarter: 2019Q4

REPORT INFORMATION
  Report Type: Spontaneous
  Country: SE (occurrence: SE)
  Receive Date: 20191226
  Receipt Date: 20191226
  Transmission Date: 20200122
  Serious: Yes (Hospitalization)
  Sender: FDA-Public Use
  Company Number: SE-TEVA-2019-SE-1157039

PATIENT
  Age: 24 Year
  Sex: Female

DRUGS (3)
  1. PROPAVAN [Suspect]
     Active Substance: PROPIOMAZINE
     Dosage: 58 ST ? 25 MG, 1450 MG
     Route: 048
     Dates: start: 20180422, end: 20180422
  2. SERTRALINE [Suspect]
     Active Substance: SERTRALINE HYDROCHLORIDE
     Dosage: 17 ST ? 100 MG, 1700 MG
     Dates: start: 20180422, end: 20180422
  3. OLANZAPINE. [Suspect]
     Active Substance: OLANZAPINE
     Dosage: 20 ST ? 2,5 MG, 50 MG
     Dates: start: 20180422, end: 20180422

REACTIONS (2)
  - Intentional overdose [Unknown]
  - Suicidal ideation [Unknown]

NARRATIVE: CASE EVENT DATE: 20180422
